FAERS Safety Report 17054584 (Version 20)
Quarter: 2023Q2

REPORT INFORMATION
  Report Type: Spontaneous
  Country: US (occurrence: US)
  Receive Date: 20191120
  Receipt Date: 20230606
  Transmission Date: 20230722
  Serious: Yes (Hospitalization, Other)
  Sender: FDA-Public Use
  Company Number: US-PFIZER INC-2019499305

PATIENT
  Age: 44 Year
  Sex: Male
  Weight: 85.28 kg

DRUGS (7)
  1. XELJANZ [Suspect]
     Active Substance: TOFACITINIB CITRATE
     Indication: Colitis ulcerative
     Dosage: 10 MG, 2X/DAY (30-DAY SUPPLY)
     Route: 048
     Dates: start: 201908
  2. XELJANZ [Suspect]
     Active Substance: TOFACITINIB CITRATE
     Indication: Rectal haemorrhage
     Dosage: 10 MG, 2X/DAY (30-DAY SUPPLY)
     Route: 048
     Dates: start: 201908
  3. XELJANZ [Suspect]
     Active Substance: TOFACITINIB CITRATE
     Dosage: 5 MG, 2X/DAY
     Route: 048
     Dates: start: 2022
  4. XELJANZ [Suspect]
     Active Substance: TOFACITINIB CITRATE
     Dosage: 5 MG, 2X/DAY
     Route: 048
  5. SYNTHROID [Concomitant]
     Active Substance: LEVOTHYROXINE SODIUM
     Indication: Thyroid disorder
     Dosage: 75 UG, DAILY
     Route: 048
  6. XYZAL [Concomitant]
     Active Substance: LEVOCETIRIZINE DIHYDROCHLORIDE
     Dosage: UNK
  7. ROSUVASTATIN [Concomitant]
     Active Substance: ROSUVASTATIN
     Indication: Blood cholesterol
     Dosage: 100 MG, 1X/DAY
     Dates: start: 2022

REACTIONS (25)
  - Sepsis [Unknown]
  - Rectal haemorrhage [Recovered/Resolved]
  - Condition aggravated [Recovered/Resolved]
  - Sinusitis [Recovering/Resolving]
  - Blood cholesterol increased [Recovering/Resolving]
  - Drug hypersensitivity [Unknown]
  - Arthralgia [Recovering/Resolving]
  - Sensitivity to weather change [Unknown]
  - Myalgia [Not Recovered/Not Resolved]
  - Weight increased [Recovering/Resolving]
  - Malaise [Unknown]
  - Contusion [Recovering/Resolving]
  - Pain [Recovering/Resolving]
  - Visual impairment [Recovering/Resolving]
  - Photosensitivity reaction [Recovering/Resolving]
  - Sleep disorder [Recovering/Resolving]
  - Therapeutic response unexpected [Unknown]
  - Pruritus [Unknown]
  - Fatigue [Not Recovered/Not Resolved]
  - Dizziness [Not Recovered/Not Resolved]
  - Vision blurred [Not Recovered/Not Resolved]
  - Muscle swelling [Recovering/Resolving]
  - Total lung capacity decreased [Recovering/Resolving]
  - Intentional product misuse [Unknown]
  - Product dose omission in error [Unknown]

NARRATIVE: CASE EVENT DATE: 20190101
